FAERS Safety Report 17572671 (Version 3)
Quarter: 2020Q3

REPORT INFORMATION
  Report Type: Spontaneous
  Country: US (occurrence: US)
  Receive Date: 20200323
  Receipt Date: 20200917
  Transmission Date: 20201102
  Serious: No
  Sender: FDA-Public Use
  Company Number: US-SA-2020SA067783

PATIENT

DRUGS (1)
  1. DUPIXENT [Suspect]
     Active Substance: DUPILUMAB
     Indication: ASTHMA
     Dosage: 300 MG, QOW
     Route: 058
     Dates: start: 20190307

REACTIONS (5)
  - Arthralgia [Recovering/Resolving]
  - Migraine [Recovering/Resolving]
  - Headache [Recovering/Resolving]
  - Alopecia [Unknown]
  - Neck pain [Recovering/Resolving]

NARRATIVE: CASE EVENT DATE: 202008
